FAERS Safety Report 6985997-8 (Version None)
Quarter: 2010Q3

REPORT INFORMATION
  Report Type: 
  Country: None (occurrence: None)
  Receive Date: 20100915
  Receipt Date: 20100607
  Transmission Date: 20110219
  Serious: No
  Sender: FDA-Public Use
  Company Number: US-ALLERGAN-1007399US

PATIENT
  Age: 79 Year
  Sex: Female

DRUGS (1)
  1. BLEPHAMIDE [Suspect]
     Indication: EYE INFECTION
     Dosage: 1 GTT, QID X 10 DAYS
     Route: 047
     Dates: start: 20100602

REACTIONS (2)
  - EYE PRURITUS [None]
  - OCULAR HYPERAEMIA [None]
